FAERS Safety Report 13864894 (Version 1)
Quarter: 2017Q3

REPORT INFORMATION
  Report Type: Spontaneous
  Country: US (occurrence: US)
  Receive Date: 20170814
  Receipt Date: 20170814
  Transmission Date: 20171127
  Serious: Yes (Hospitalization, Other)
  Sender: FDA-Public Use
  Company Number: US-PFIZER INC-2017346491

PATIENT
  Age: 56 Year
  Sex: Female
  Weight: 59 kg

DRUGS (9)
  1. NITROBID /00003201/ [Concomitant]
     Active Substance: NITROGLYCERIN
     Indication: PERIPHERAL VASCULAR DISORDER
     Dosage: UNK UNK, 4X/DAY
     Dates: start: 2017
  2. CETIRIZINE [Concomitant]
     Active Substance: CETIRIZINE HYDROCHLORIDE
     Indication: HYPERSENSITIVITY
     Dosage: 10 MG, 1X/DAY IN THE MORNING
     Dates: start: 2017
  3. HYDROCODONE [Concomitant]
     Active Substance: HYDROCODONE
     Indication: PAIN
     Dosage: 10-325 MG, AS NEEDED
     Dates: start: 20170802
  4. AMLODIPINE [Concomitant]
     Active Substance: AMLODIPINE BESYLATE
     Dosage: 10 MG, 1X/DAY
  5. AMLODIPINE [Concomitant]
     Active Substance: AMLODIPINE BESYLATE
     Indication: BLOOD PRESSURE ABNORMAL
     Dosage: 5 MG, UNK
     Dates: start: 2014
  6. MONTELUKAST [Concomitant]
     Active Substance: MONTELUKAST SODIUM
     Indication: HYPERSENSITIVITY
     Dosage: 10 MG, 1X/DAY AT NIGHT
     Dates: start: 2017
  7. REVATIO [Suspect]
     Active Substance: SILDENAFIL CITRATE
     Indication: RAYNAUD^S PHENOMENON
     Dosage: 20 MG, 3X/DAY
     Route: 048
     Dates: start: 2014
  8. FOLIC ACID. [Concomitant]
     Active Substance: FOLIC ACID
     Indication: GASTROOESOPHAGEAL REFLUX DISEASE
     Dosage: 1 MG, 1X/DAY
     Dates: start: 2017
  9. OMEPRAZOLE. [Concomitant]
     Active Substance: OMEPRAZOLE
     Indication: GASTROOESOPHAGEAL REFLUX DISEASE
     Dosage: 40 MG, 1X/DAY
     Dates: start: 2016

REACTIONS (4)
  - Haematochezia [Not Recovered/Not Resolved]
  - Arthritis [Not Recovered/Not Resolved]
  - Product use in unapproved indication [Unknown]
  - Haemorrhage [Not Recovered/Not Resolved]

NARRATIVE: CASE EVENT DATE: 2014
